FAERS Safety Report 20603547 (Version 1)
Quarter: 2022Q1

REPORT INFORMATION
  Report Type: Spontaneous
  Country: US (occurrence: None)
  Receive Date: 20220316
  Receipt Date: 20220316
  Transmission Date: 20220423
  Serious: Yes (Hospitalization)
  Sender: FDA-Public Use
  Company Number: None

PATIENT
  Age: 77 Year
  Sex: Male
  Weight: 90 kg

DRUGS (1)
  1. CILGAVIMAB\TIXAGEVIMAB [Suspect]
     Active Substance: CILGAVIMAB\TIXAGEVIMAB
     Dosage: 300 MG ONCE IM?
     Route: 030
     Dates: start: 20220207, end: 20220301

REACTIONS (12)
  - Pericarditis [None]
  - Tachypnoea [None]
  - Sinus tachycardia [None]
  - Troponin increased [None]
  - Atrial fibrillation [None]
  - Pyrexia [None]
  - Dyspnoea [None]
  - Left ventricular hypertrophy [None]
  - Pancytopenia [None]
  - Aortic stenosis [None]
  - Ventricular extrasystoles [None]
  - Anaemia [None]

NARRATIVE: CASE EVENT DATE: 20220310
